FAERS Safety Report 18493633 (Version 8)
Quarter: 2024Q3

REPORT INFORMATION
  Report Type: Report from Study
  Country: CA (occurrence: CA)
  Receive Date: 20201111
  Receipt Date: 20240902
  Transmission Date: 20241016
  Serious: Yes (Other)
  Sender: TAKEDA
  Company Number: CA-TAKEDA-2018TUS032985

PATIENT
  Sex: Female

DRUGS (14)
  1. VEDOLIZUMAB [Suspect]
     Active Substance: VEDOLIZUMAB
     Indication: Crohn^s disease
     Dosage: 300 MILLIGRAM
     Route: 042
     Dates: start: 20160730
  2. VEDOLIZUMAB [Suspect]
     Active Substance: VEDOLIZUMAB
     Dosage: 300 MILLIGRAM
     Route: 042
  3. VEDOLIZUMAB [Suspect]
     Active Substance: VEDOLIZUMAB
     Dosage: 300 MILLIGRAM
     Route: 042
  4. VEDOLIZUMAB [Suspect]
     Active Substance: VEDOLIZUMAB
     Dosage: 300 MILLIGRAM
     Route: 042
  5. VEDOLIZUMAB [Suspect]
     Active Substance: VEDOLIZUMAB
     Dosage: 300 MILLIGRAM
     Route: 042
  6. VEDOLIZUMAB [Suspect]
     Active Substance: VEDOLIZUMAB
     Dosage: 300 MILLIGRAM, Q4WEEKS
     Route: 042
     Dates: start: 20201222
  7. VEDOLIZUMAB [Suspect]
     Active Substance: VEDOLIZUMAB
     Dosage: 300 MILLIGRAM, Q4WEEKS
     Route: 042
  8. VEDOLIZUMAB [Suspect]
     Active Substance: VEDOLIZUMAB
     Dosage: 300 MILLIGRAM, Q4WEEKS
     Route: 042
  9. VEDOLIZUMAB [Suspect]
     Active Substance: VEDOLIZUMAB
     Dosage: 300 MILLIGRAM, Q4WEEKS
     Route: 042
  10. VEDOLIZUMAB [Suspect]
     Active Substance: VEDOLIZUMAB
     Dosage: 300 MILLIGRAM, Q4WEEKS
     Route: 042
  11. PLAQUENIL [Concomitant]
     Active Substance: HYDROXYCHLOROQUINE SULFATE
     Indication: Arthritis
     Dosage: 100 MILLIGRAM, BID
  12. JANUMET XR [Concomitant]
     Active Substance: METFORMIN HYDROCHLORIDE\SITAGLIPTIN PHOSPHATE
     Dosage: UNK
  13. DIAMICRON [Concomitant]
     Indication: Diabetes mellitus
     Dosage: 60 MILLIGRAM, BID
  14. INVOKANA [Concomitant]
     Active Substance: CANAGLIFLOZIN
     Indication: Diabetes mellitus
     Dosage: 300 MILLIGRAM, QD
     Dates: start: 20160715

REACTIONS (13)
  - Crohn^s disease [Recovering/Resolving]
  - Arthritis [Recovering/Resolving]
  - Pneumonia [Unknown]
  - Diarrhoea [Recovering/Resolving]
  - Proctalgia [Unknown]
  - Therapeutic reaction time decreased [Recovering/Resolving]
  - Off label use [Unknown]
  - Mucous stools [Unknown]
  - Malaise [Unknown]
  - Abdominal pain [Unknown]
  - Vomiting [Unknown]
  - Sinusitis [Unknown]
  - Nausea [Unknown]

NARRATIVE: CASE EVENT DATE: 20180101
